FAERS Safety Report 13176007 (Version 1)
Quarter: 2017Q1

REPORT INFORMATION
  Report Type: Report from Study
  Country: BR (occurrence: BR)
  Receive Date: 20170201
  Receipt Date: 20170201
  Transmission Date: 20170428
  Serious: Yes (Death)
  Sender: FDA-Public Use
  Company Number: PHHY2017BR015401

PATIENT
  Sex: Female
  Weight: 63 kg

DRUGS (2)
  1. EXELON PATCH [Suspect]
     Active Substance: RIVASTIGMINE
     Indication: DEMENTIA
     Dosage: 13.3 MG, QD  (PATCH 15 (CM2)) (BY THE END OF 2013, BETWEEN THE END OF 2014)
     Route: 062
  2. TRAVATAN [Suspect]
     Active Substance: TRAVOPROST
     Indication: GLAUCOMA
     Dosage: 1 DRP, UNK (IN EACH EYE AT NIGHT)
     Route: 047

REACTIONS (1)
  - Death [Fatal]
